FAERS Safety Report 25729562 (Version 3)
Quarter: 2025Q3

REPORT INFORMATION
  Report Type: Spontaneous
  Country: US (occurrence: US)
  Receive Date: 20250827
  Receipt Date: 20250925
  Transmission Date: 20251020
  Serious: Yes (Hospitalization)
  Sender: ROCHE
  Company Number: US-ROCHE-10000372662

PATIENT
  Sex: Female

DRUGS (2)
  1. HEMLIBRA [Suspect]
     Active Substance: EMICIZUMAB-KXWH
     Indication: Von Willebrand^s disease
     Dosage: STRENGTH: 150 MG/ML?STRENGTH: 60 MG/ 0.4 ML
     Route: 058
     Dates: start: 202310
  2. HEMLIBRA [Suspect]
     Active Substance: EMICIZUMAB-KXWH
     Dosage: STRENGTH: 150 MG/ML?STRENGTH: 60 MG/ 0.4 ML
     Route: 058
     Dates: start: 20250702

REACTIONS (3)
  - Ovarian cyst ruptured [Unknown]
  - Off label use [Unknown]
  - Internal haemorrhage [Unknown]
